FAERS Safety Report 7398430-1 (Version None)
Quarter: 2011Q2

REPORT INFORMATION
  Report Type: 
  Country: None (occurrence: None)
  Receive Date: 20110407
  Receipt Date: 20110329
  Transmission Date: 20111010
  Serious: Yes (Hospitalization)
  Sender: FDA-Public Use
  Company Number: US-BIOGENIDEC-2008BI020349

PATIENT
  Age: 48 Year
  Sex: Female

DRUGS (2)
  1. TYSABRI [Suspect]
     Indication: MULTIPLE SCLEROSIS
     Route: 042
     Dates: start: 20070627, end: 20090701
  2. TYSABRI [Suspect]
     Route: 042
     Dates: start: 20110322

REACTIONS (2)
  - FALL [None]
  - INTERVERTEBRAL DISC INJURY [None]
